FAERS Safety Report 24394661 (Version 2)
Quarter: 2024Q4

REPORT INFORMATION
  Report Type: Spontaneous
  Country: RU (occurrence: RU)
  Receive Date: 20241004
  Receipt Date: 20241004
  Transmission Date: 20250115
  Serious: Yes (Death)
  Sender: BOEHRINGER INGELHEIM
  Company Number: RU-BoehringerIngelheim-2024-BI-054686

PATIENT
  Sex: Female
  Weight: 35 kg

DRUGS (5)
  1. OFEV [Suspect]
     Active Substance: NINTEDANIB
     Indication: Pleuroparenchymal fibroelastosis
     Route: 048
     Dates: start: 202403, end: 20240328
  2. METHYLPREDNISOLONE [Concomitant]
     Active Substance: METHYLPREDNISOLONE
     Indication: Pleuroparenchymal fibroelastosis
     Route: 048
     Dates: start: 2015
  3. MAGNESIUM ASPARTATE\POTASSIUM ASPARTATE [Concomitant]
     Active Substance: MAGNESIUM ASPARTATE\POTASSIUM ASPARTATE
     Indication: Product used for unknown indication
     Dosage: 2 TABLETS A DAY
     Route: 048
  4. FLUIMUCIL [Concomitant]
     Active Substance: ACETYLCYSTEINE
     Indication: Pleuroparenchymal fibroelastosis
     Route: 048
     Dates: start: 2015
  5. FOROSA [Concomitant]
     Indication: Osteoporosis
     Route: 048

REACTIONS (2)
  - Respiratory failure [Fatal]
  - Cachexia [Fatal]
